FAERS Safety Report 6844545 (Version 6)
Quarter: 2015Q2

REPORT INFORMATION
  Report Type: Spontaneous
  Country: US (occurrence: US)
  Receive Date: 20081212
  Receipt Date: 20150401
  Transmission Date: 20150821
  Serious: Yes (Other)
  Sender: FDA-Public Use
  Company Number: US-BAYER-200840185NA

PATIENT
  Age: 26 Year
  Sex: Female

DRUGS (1)
  1. MIRENA [Suspect]
     Active Substance: LEVONORGESTREL
     Indication: CONTRACEPTION
     Dosage: 20 MCG/DAY CONTINUOUS
     Route: 015

REACTIONS (4)
  - Vaginal perforation [Unknown]
  - Ectopic pregnancy with contraceptive device [Unknown]
  - Device dislocation [None]
  - Pregnancy test positive [Unknown]
